FAERS Safety Report 6152763-5 (Version None)
Quarter: 2009Q2

REPORT INFORMATION
  Report Type: 
  Country: None (occurrence: None)
  Receive Date: 20090409
  Receipt Date: 20090127
  Transmission Date: 20091009
  Serious: No
  Sender: FDA-Public Use
  Company Number: 2009000683

PATIENT

DRUGS (1)
  1. FENTORA [Suspect]
     Dosage: PRESCRIPTION WRITTEN FOR 36 TABLETS/ DAY

REACTIONS (1)
  - DRUG PRESCRIBING ERROR [None]
